FAERS Safety Report 6301573-4 (Version None)
Quarter: 2009Q3

REPORT INFORMATION
  Report Type: 
  Country: None (occurrence: None)
  Receive Date: 20090807
  Receipt Date: 20090729
  Transmission Date: 20100115
  Serious: Yes (Hospitalization)
  Sender: FDA-Public Use
  Company Number: JP-PFIZER INC-2009153704

PATIENT
  Age: 66 Year

DRUGS (5)
  1. LIPITOR [Suspect]
     Indication: HYPERLIPIDAEMIA
     Dosage: 10 MG, UNKNOWN/D
     Route: 048
     Dates: end: 20081022
  2. ASPIRIN [Concomitant]
     Dosage: 100 MG, UNK
     Route: 048
     Dates: end: 20081022
  3. AMLODIPINE [Concomitant]
     Dosage: 5 MG, UNK
     Route: 048
     Dates: end: 20081022
  4. ARTIST [Concomitant]
     Dosage: 10 MG, UNK
     Route: 048
     Dates: end: 20081022
  5. MUCOSTA [Concomitant]
     Dosage: 100 MG, UNK
     Route: 048
     Dates: end: 20081022

REACTIONS (1)
  - HEPATITIS ACUTE [None]
